FAERS Safety Report 17390314 (Version 9)
Quarter: 2021Q3

REPORT INFORMATION
  Report Type: Spontaneous
  Country: FR (occurrence: FR)
  Receive Date: 20200207
  Receipt Date: 20210811
  Transmission Date: 20211014
  Serious: Yes (Disabling, Other)
  Sender: FDA-Public Use
  Company Number: FR-MYLANLABS-2020M1013397

PATIENT
  Age: 12 Year
  Sex: Female

DRUGS (15)
  1. EVEROLIMUS. [Suspect]
     Active Substance: EVEROLIMUS
     Indication: NEURODEVELOPMENTAL DISORDER
     Dosage: 5 MILLIGRAM, QD
     Route: 065
  2. EVEROLIMUS. [Suspect]
     Active Substance: EVEROLIMUS
     Dosage: 12.5 MILLIGRAM, QD
     Route: 065
  3. L?THYROXINE                        /00068001/ [Concomitant]
     Active Substance: LEVOTHYROXINE
     Indication: HYPOTHYROIDISM
     Dosage: UNK
     Route: 065
  4. AMOXICILLIN. [Concomitant]
     Active Substance: AMOXICILLIN
     Indication: PNEUMONIA
     Dosage: AT THE END OF THE THIRD MONTH OF EVEROLIMUS
  5. EVEROLIMUS. [Suspect]
     Active Substance: EVEROLIMUS
     Dosage: 7.5 MILLIGRAM, QD
  6. EVEROLIMUS. [Suspect]
     Active Substance: EVEROLIMUS
     Indication: EPILEPSY
     Dosage: 7.5 MILLIGRAM, QD(SIXTEEN DAYS AFTER THE INITIATION, DOSE WAS INCREASED TO 7.5 MILLIGRAM, QD)
     Route: 065
  7. LACOSAMIDE. [Concomitant]
     Active Substance: LACOSAMIDE
     Indication: EPILEPSY
     Dosage: UNK
     Route: 065
     Dates: start: 201401
  8. LAMOTRIGINE. [Concomitant]
     Active Substance: LAMOTRIGINE
     Indication: EPILEPSY
     Dosage: UNK
     Route: 065
     Dates: start: 2008
  9. SALBUTAMOL [Concomitant]
     Active Substance: ALBUTEROL
     Indication: PNEUMONIA
     Dosage: AT THE END OF THE THIRD MONTH OF EVEROLIMUS
  10. EVEROLIMUS. [Suspect]
     Active Substance: EVEROLIMUS
     Dosage: LOW?DOSE TREATMENT WAS INITIATED (5 MG) AND PROGRESSIVELY INCREASED
     Route: 048
  11. LACOSAMIDE. [Concomitant]
     Active Substance: LACOSAMIDE
     Dosage: UNK
     Route: 065
  12. EVEROLIMUS. [Suspect]
     Active Substance: EVEROLIMUS
     Indication: SEIZURE
     Dosage: 10 MILLIGRAM, QD(ON DAY 45, DOSE WAS FURTHER INCREASED TO 10 MILLIGRAM, QD)
     Route: 065
  13. EVEROLIMUS. [Suspect]
     Active Substance: EVEROLIMUS
     Dosage: 12.5 MILLIGRAM, QD(ON DAY 75, DOSE WAS INCREASED TO 12.5 MILLIGRAM, QD)
     Route: 065
  14. EVEROLIMUS. [Suspect]
     Active Substance: EVEROLIMUS
     Dosage: 10 MILLIGRAM, QD
  15. LEVOTHYROXINE. [Concomitant]
     Active Substance: LEVOTHYROXINE
     Indication: HYPOTHYROIDISM
     Dosage: UNK

REACTIONS (19)
  - Condition aggravated [Not Recovered/Not Resolved]
  - Leukopenia [Recovered/Resolved]
  - Acne [Recovered/Resolved]
  - Salivary hypersecretion [Unknown]
  - Pyrexia [Unknown]
  - Drug ineffective for unapproved indication [Recovered/Resolved]
  - Drug ineffective [Unknown]
  - Pneumonia [Unknown]
  - Behaviour disorder [Recovering/Resolving]
  - Alopecia [Recovered/Resolved]
  - Off label use [Recovered/Resolved]
  - Epistaxis [Unknown]
  - Abnormal behaviour [Recovered/Resolved]
  - Seizure [Unknown]
  - Neutropenia [Recovered/Resolved]
  - Asthenia [Not Recovered/Not Resolved]
  - Intentional product use issue [Unknown]
  - Rhinorrhoea [Unknown]
  - Diarrhoea [Unknown]
